FAERS Safety Report 24439251 (Version 1)
Quarter: 2024Q4

REPORT INFORMATION
  Report Type: Spontaneous
  Country: FR (occurrence: FR)
  Receive Date: 20241015
  Receipt Date: 20241015
  Transmission Date: 20250115
  Serious: Yes (Death)
  Sender: TAKEDA
  Company Number: None

PATIENT
  Age: 52 Year
  Sex: Female
  Weight: 50.3 kg

DRUGS (14)
  1. LANSOPRAZOLE [Interacting]
     Active Substance: LANSOPRAZOLE
     Indication: Gastroduodenal ulcer
     Dosage: 15 MILLIGRAM, QD
     Route: 048
     Dates: start: 2023
  2. POSACONAZOLE [Interacting]
     Active Substance: POSACONAZOLE
     Indication: Oral candidiasis
     Dosage: 400 MILLIGRAM, Q12H
     Route: 048
     Dates: start: 20240718
  3. AMISULPRIDE [Interacting]
     Active Substance: AMISULPRIDE
     Indication: Bipolar disorder
     Dosage: 100 MILLIGRAM, QD
     Route: 048
     Dates: start: 2018
  4. DIAZEPAM [Interacting]
     Active Substance: DIAZEPAM
     Indication: Product used for unknown indication
     Dosage: 5 MILLIGRAM, Q12H
     Route: 048
     Dates: start: 201902
  5. SERTRALINE HYDROCHLORIDE [Interacting]
     Active Substance: SERTRALINE HYDROCHLORIDE
     Indication: Bipolar disorder
     Dosage: 100 MILLIGRAM, QD
     Route: 048
     Dates: start: 2018
  6. TRAMADOL HYDROCHLORIDE [Interacting]
     Active Substance: TRAMADOL HYDROCHLORIDE
     Indication: Product used for unknown indication
     Dosage: 50 MILLIGRAM, Q6HR
     Route: 048
     Dates: start: 2023
  7. ONDANSETRON [Interacting]
     Active Substance: ONDANSETRON
     Indication: Vomiting
     Dosage: 4 MILLIGRAM, Q8HR
     Route: 042
     Dates: start: 2024
  8. BIMATOPROST\TIMOLOL [Interacting]
     Active Substance: BIMATOPROST\TIMOLOL
     Indication: Glaucoma
     Dosage: 1 GTT DROPS, QD
     Route: 050
     Dates: start: 2023
  9. EBASTINE [Interacting]
     Active Substance: EBASTINE
     Indication: Product used for unknown indication
     Dosage: 10 MILLIGRAM, QD
     Route: 048
     Dates: start: 2018
  10. ZOPICLONE [Concomitant]
     Active Substance: ZOPICLONE
     Dosage: 3.75 MILLIGRAM, QD
     Route: 048
     Dates: start: 2024
  11. LAMOTRIGINE [Concomitant]
     Active Substance: LAMOTRIGINE
     Indication: Bipolar disorder
     Dosage: 75 MILLIGRAM, QD
     Route: 048
     Dates: start: 2018
  12. LACTULOSE [Concomitant]
     Active Substance: LACTULOSE
     Dosage: 20 MILLIGRAM, Q8HR
     Route: 048
     Dates: start: 2024
  13. PAROEX [Concomitant]
     Active Substance: CHLORHEXIDINE GLUCONATE
     Dosage: UNK
     Route: 002
     Dates: start: 2024
  14. LEVOTHYROXINE [Concomitant]
     Active Substance: LEVOTHYROXINE
     Dosage: 25 MICROGRAM, QD
     Route: 048
     Dates: start: 20240611

REACTIONS (1)
  - Cardiac arrest [Fatal]

NARRATIVE: CASE EVENT DATE: 20240725
